FAERS Safety Report 20823453 (Version 2)
Quarter: 2022Q2

REPORT INFORMATION
  Report Type: Spontaneous
  Country: HK (occurrence: HK)
  Receive Date: 20220513
  Receipt Date: 20220523
  Transmission Date: 20220720
  Serious: Yes (Other)
  Sender: FDA-Public Use
  Company Number: HK-PFIZER INC-202200672374

PATIENT
  Age: 64 Year
  Sex: Female

DRUGS (1)
  1. REVATIO [Suspect]
     Active Substance: SILDENAFIL CITRATE
     Indication: Pulmonary hypertension
     Dosage: 20 MG, 3X/DAY

REACTIONS (2)
  - Lung neoplasm malignant [Unknown]
  - Uterine cancer [Unknown]

NARRATIVE: CASE EVENT DATE: 20210101
